FAERS Safety Report 12387540 (Version 1)
Quarter: 2016Q2

REPORT INFORMATION
  Report Type: Spontaneous
  Country: US (occurrence: US)
  Receive Date: 20160520
  Receipt Date: 20160520
  Transmission Date: 20160815
  Serious: No
  Sender: FDA-Public Use
  Company Number: US-009507513-1605USA009662

PATIENT

DRUGS (1)
  1. BRIDION [Suspect]
     Active Substance: SUGAMMADEX
     Dosage: 100 MG/ML, UNK
     Route: 042

REACTIONS (2)
  - Agitation [Unknown]
  - Surgery [Unknown]

NARRATIVE: CASE EVENT DATE: 20160511
